FAERS Safety Report 9685675 (Version 3)
Quarter: 2014Q1

REPORT INFORMATION
  Report Type: Spontaneous
  Country: US (occurrence: US)
  Receive Date: 20131113
  Receipt Date: 20140102
  Transmission Date: 20141002
  Serious: No
  Sender: FDA-Public Use
  Company Number: US-PFIZER INC-2013320414

PATIENT
  Age: 66 Year
  Sex: Female

DRUGS (3)
  1. INLYTA [Suspect]
     Indication: RENAL CANCER
     Dosage: 10 MG 2X/DAY, 20 MG (2) 5MG TABS TWICE DAILY
     Route: 048
     Dates: start: 20130603
  2. INLYTA [Suspect]
     Dosage: 10 MG, 2X/DAY
     Route: 048
     Dates: start: 20130805
  3. INLYTA [Suspect]
     Dosage: 10 MG, 2X/DAY (5 MG 2 TABLETS BID)
     Dates: start: 20130804

REACTIONS (2)
  - Fatigue [Unknown]
  - Dyspnoea [Unknown]
